FAERS Safety Report 6544551-2 (Version None)
Quarter: 2010Q1

REPORT INFORMATION
  Report Type: 
  Country: None (occurrence: None)
  Receive Date: 20100120
  Receipt Date: 20100120
  Transmission Date: 20100710
  Serious: Yes (Hospitalization)
  Sender: FDA-Public Use
  Company Number: None

PATIENT
  Sex: Female
  Weight: 86.1 kg

DRUGS (10)
  1. TEMOZOLOMIDE [Suspect]
     Indication: ACUTE MYELOID LEUKAEMIA
     Dosage: 100 MG/M2 QD PO 200 MG/M2 QD PO
     Route: 048
     Dates: start: 20091203, end: 20091216
  2. TEMOZOLOMIDE [Suspect]
     Indication: ACUTE MYELOID LEUKAEMIA
     Dosage: 100 MG/M2 QD PO 200 MG/M2 QD PO
     Route: 048
     Dates: start: 20091217, end: 20091221
  3. TYLENOL PRN [Concomitant]
  4. QUINAPRIL [Concomitant]
  5. GLIPIZIDE [Concomitant]
  6. GLIMEPIRIDE [Concomitant]
  7. LT4 [Concomitant]
  8. PREVACID [Concomitant]
  9. LANTUS [Concomitant]
  10. ZOFRAN [Concomitant]

REACTIONS (2)
  - HERPES ZOSTER [None]
  - PANCYTOPENIA [None]
